FAERS Safety Report 8373961-6 (Version None)
Quarter: 2012Q2

REPORT INFORMATION
  Report Type: 
  Country: None (occurrence: None)
  Receive Date: 20120521
  Receipt Date: 20120516
  Transmission Date: 20120825
  Serious: Yes (Hospitalization)
  Sender: FDA-Public Use
  Company Number: PHHY2012JP041893

PATIENT
  Age: 86 Year
  Sex: Male

DRUGS (4)
  1. PYRAZINAMIDE [Suspect]
     Indication: TUBERCULOSIS
     Dosage: 1.2 MG, UNK
     Route: 048
     Dates: start: 20120409, end: 20120501
  2. RIFAMPICIN [Suspect]
     Indication: TUBERCULOSIS
     Dosage: 450 MG, UNK
     Route: 048
     Dates: start: 20120409, end: 20120501
  3. ETHAMBUTOL HYDROCHLORIDE [Suspect]
     Indication: TUBERCULOSIS
     Dosage: 750 MG, UNK
     Route: 048
     Dates: start: 20120409, end: 20120501
  4. ISONIAZID [Suspect]
     Indication: TUBERCULOSIS
     Dosage: 300 MG, UNK
     Route: 048
     Dates: start: 20120409, end: 20120501

REACTIONS (2)
  - DYSPNOEA [None]
  - INTERSTITIAL LUNG DISEASE [None]
